FAERS Safety Report 16439701 (Version 2)
Quarter: 2019Q3

REPORT INFORMATION
  Report Type: Spontaneous
  Country: US (occurrence: US)
  Receive Date: 20190617
  Receipt Date: 20190729
  Transmission Date: 20191004
  Serious: Yes (Other)
  Sender: FDA-Public Use
  Company Number: US-PFIZER INC-2019253738

PATIENT
  Age: 45 Year
  Sex: Female
  Weight: 81.65 kg

DRUGS (1)
  1. LYRICA [Suspect]
     Active Substance: PREGABALIN
     Indication: POST LAMINECTOMY SYNDROME
     Dosage: 200 MG, 3X/DAY
     Route: 048

REACTIONS (12)
  - Speech disorder [Not Recovered/Not Resolved]
  - Off label use [Unknown]
  - Generalised oedema [Not Recovered/Not Resolved]
  - Frustration tolerance decreased [Unknown]
  - Deafness [Not Recovered/Not Resolved]
  - Asthenia [Not Recovered/Not Resolved]
  - Haematopoietic neoplasm [Not Recovered/Not Resolved]
  - Cardiac failure congestive [Not Recovered/Not Resolved]
  - Polycythaemia vera [Not Recovered/Not Resolved]
  - Visual impairment [Not Recovered/Not Resolved]
  - Memory impairment [Unknown]
  - Nervousness [Unknown]

NARRATIVE: CASE EVENT DATE: 201810
